FAERS Safety Report 9108321 (Version 1)
Quarter: 2013Q1

REPORT INFORMATION
  Report Type: Spontaneous
  Country: US (occurrence: US)
  Receive Date: 20130222
  Receipt Date: 20130222
  Transmission Date: 20140127
  Serious: Yes (Hospitalization)
  Sender: FDA-Public Use
  Company Number: US-AMGEN-USASP2013011467

PATIENT
  Age: 50 Year
  Sex: Male

DRUGS (6)
  1. ENBREL [Suspect]
     Indication: RHEUMATOID ARTHRITIS
     Dosage: 50 MG, QWK
     Dates: start: 19980101
  2. HUMIRA [Concomitant]
     Dosage: UNK
     Dates: start: 2004, end: 2009
  3. CIMZIA [Concomitant]
     Dosage: UNK
     Dates: start: 2009, end: 2010
  4. ACTEMRA [Concomitant]
     Dosage: UNK
     Dates: start: 2010, end: 2010
  5. METHOTREXATE [Concomitant]
     Dosage: UNK
     Dates: start: 2010, end: 201009
  6. LEFLUNOMIDE [Concomitant]
     Dosage: UNK
     Dates: start: 2011

REACTIONS (10)
  - Arthrodesis [Recovered/Resolved]
  - Foot deformity [Recovered/Resolved]
  - Knee arthroplasty [Recovered/Resolved]
  - Drug ineffective [Recovered/Resolved]
  - Nausea [Recovered/Resolved]
  - Laceration [Recovered/Resolved]
  - Excoriation [Recovered/Resolved]
  - Impaired healing [Recovered/Resolved]
  - Cough [Recovered/Resolved]
  - Nasopharyngitis [Recovered/Resolved]
